FAERS Safety Report 24011598 (Version 1)
Quarter: 2024Q2

REPORT INFORMATION
  Report Type: Spontaneous
  Country: US (occurrence: US)
  Receive Date: 20240625
  Receipt Date: 20240625
  Transmission Date: 20240715
  Serious: Yes (Other)
  Sender: FDA-Public Use
  Company Number: US-Blueprint Medicines Corporation-3945

PATIENT
  Sex: Female

DRUGS (1)
  1. AYVAKIT [Suspect]
     Active Substance: AVAPRITINIB
     Indication: Systemic mastocytosis
     Route: 065
     Dates: start: 20240304

REACTIONS (5)
  - Primary progressive multiple sclerosis [Unknown]
  - Dyspepsia [Unknown]
  - Urticaria [Unknown]
  - Symptom recurrence [Unknown]
  - Feeling abnormal [Unknown]
